FAERS Safety Report 5449478-5 (Version None)
Quarter: 2007Q3

REPORT INFORMATION
  Report Type: 
  Country: None (occurrence: None)
  Receive Date: 20070907
  Receipt Date: 20070823
  Transmission Date: 20080115
  Serious: Yes (Death)
  Sender: FDA-Public Use
  Company Number: 2007RR-09556

PATIENT

DRUGS (1)
  1. IBUPROFEN [Suspect]

REACTIONS (4)
  - OLIGURIA [None]
  - OVERDOSE [None]
  - REFUSAL OF TREATMENT BY PATIENT [None]
  - SEPSIS [None]
